FAERS Safety Report 8844264 (Version 1)
Quarter: 2012Q4

REPORT INFORMATION
  Report Type: 
  Country: DE (occurrence: DE)
  Receive Date: 20121017
  Receipt Date: 20121017
  Transmission Date: 20130627
  Serious: Yes (Other)
  Sender: FDA-Public Use
  Company Number: DE-BAYER-2012-107213

PATIENT
  Age: 53 Year
  Sex: Female
  Weight: 54.88 kg

DRUGS (4)
  1. GADOVIST [Suspect]
     Indication: HEADACHE
     Dosage: 7.5 ml, ONCE
  2. GADOVIST [Suspect]
     Indication: SYNCOPE
  3. GADOVIST [Suspect]
     Indication: ISCHAEMIA
  4. GADOVIST [Suspect]
     Indication: INFLAMMATION

REACTIONS (6)
  - Loss of consciousness [Recovered/Resolved]
  - Cardiovascular disorder [Recovered/Resolved]
  - Nausea [Recovered/Resolved]
  - Vomiting [Recovered/Resolved]
  - Malaise [Recovered/Resolved]
  - Skin reaction [Recovered/Resolved]
